FAERS Safety Report 24048780 (Version 2)
Quarter: 2025Q1

REPORT INFORMATION
  Report Type: Spontaneous
  Country: JP (occurrence: JP)
  Receive Date: 20240704
  Receipt Date: 20250324
  Transmission Date: 20250408
  Serious: Yes (Hospitalization, Other)
  Sender: AMGEN
  Company Number: JP-KYOWAKIRIN-2024KK015517

PATIENT
  Age: 39 Year
  Sex: Male

DRUGS (11)
  1. FILGRASTIM [Suspect]
     Active Substance: FILGRASTIM
     Indication: Product used for unknown indication
     Route: 065
  2. VINCRISTINE SULFATE [Concomitant]
     Active Substance: VINCRISTINE SULFATE
     Indication: Ewing^s sarcoma
     Route: 065
  3. VINCRISTINE SULFATE [Concomitant]
     Active Substance: VINCRISTINE SULFATE
     Route: 065
  4. DOXORUBICIN HYDROCHLORIDE [Concomitant]
     Active Substance: DOXORUBICIN HYDROCHLORIDE
     Indication: Ewing^s sarcoma
     Route: 065
  5. DOXORUBICIN HYDROCHLORIDE [Concomitant]
     Active Substance: DOXORUBICIN HYDROCHLORIDE
     Route: 065
  6. CYCLOPHOSPHAMIDE [Concomitant]
     Active Substance: CYCLOPHOSPHAMIDE
     Indication: Ewing^s sarcoma
     Route: 065
  7. CYCLOPHOSPHAMIDE [Concomitant]
     Active Substance: CYCLOPHOSPHAMIDE
     Route: 065
  8. IFOSFAMIDE [Concomitant]
     Active Substance: IFOSFAMIDE
     Indication: Ewing^s sarcoma
     Route: 065
  9. IFOSFAMIDE [Concomitant]
     Active Substance: IFOSFAMIDE
     Route: 065
  10. ETOPOSIDE [Concomitant]
     Active Substance: ETOPOSIDE
     Indication: Ewing^s sarcoma
     Route: 065
  11. ETOPOSIDE [Concomitant]
     Active Substance: ETOPOSIDE
     Route: 065

REACTIONS (2)
  - Aortitis [Recovered/Resolved]
  - Off label use [Unknown]
